FAERS Safety Report 10094516 (Version 2)
Quarter: 2014Q3

REPORT INFORMATION
  Report Type: Spontaneous
  Country: IT (occurrence: None)
  Receive Date: 20140418
  Receipt Date: 20140714
  Transmission Date: 20150326
  Serious: Yes (Other)
  Sender: FDA-Public Use
  Company Number: IT-015324

PATIENT
  Age: 73 Year
  Sex: Male

DRUGS (1)
  1. FIRMAGON [Suspect]
     Active Substance: DEGARELIX ACETATE
     Indication: PROSTATE CANCER
     Dosage: 80 MG
     Route: 058
     Dates: start: 20121015, end: 20121015

REACTIONS (2)
  - Fall [None]
  - Spinal fracture [None]

NARRATIVE: CASE EVENT DATE: 20140102
